FAERS Safety Report 6202457-2 (Version None)
Quarter: 2009Q2

REPORT INFORMATION
  Report Type: 
  Country: None (occurrence: None)
  Receive Date: 20090526
  Receipt Date: 20090518
  Transmission Date: 20091009
  Serious: Yes (Life-Threatening)
  Sender: FDA-Public Use
  Company Number: DE-PFIZER INC-2009183186

PATIENT
  Age: 64 Year

DRUGS (1)
  1. SUTENT [Suspect]
     Indication: METASTATIC RENAL CELL CARCINOMA
     Dosage: 50 MG/DAY
     Route: 048
     Dates: start: 20090112, end: 20090202

REACTIONS (2)
  - HAEMORRHAGE [None]
  - VASCULITIS [None]
